FAERS Safety Report 7230825-9 (Version None)
Quarter: 2011Q1

REPORT INFORMATION
  Report Type: 
  Country: None (occurrence: None)
  Receive Date: 20110107
  Receipt Date: 20101230
  Transmission Date: 20110831
  Serious: Yes (Hospitalization)
  Sender: FDA-Public Use
  Company Number: 024200

PATIENT
  Age: 59 Year
  Sex: Male

DRUGS (4)
  1. KEPPRA [Suspect]
     Indication: PARTIAL SEIZURES
     Dosage: (1000 MG BID ORAL)
     Route: 048
     Dates: start: 20101112, end: 20101215
  2. ASACOL [Concomitant]
  3. NORMIX [Concomitant]
  4. CATAPRESAN /00171102/ [Concomitant]

REACTIONS (4)
  - HYPOTONIA [None]
  - GASTROINTESTINAL DISORDER [None]
  - DIARRHOEA [None]
  - HYPOKALAEMIA [None]
